FAERS Safety Report 10199627 (Version 1)
Quarter: 2014Q2

REPORT INFORMATION
  Report Type: Spontaneous
  Country: KR (occurrence: KR)
  Receive Date: 20140527
  Receipt Date: 20140527
  Transmission Date: 20141212
  Serious: Yes (Other)
  Sender: FDA-Public Use
  Company Number: KR-BAXTER-2014BAX026708

PATIENT
  Age: 32 Year
  Sex: Male

DRUGS (2)
  1. FEIBA STIM4 [Suspect]
     Indication: FACTOR VIII DEFICIENCY
     Route: 065
  2. FEIBA STIM4 [Suspect]
     Route: 065

REACTIONS (1)
  - Wound secretion [Recovered/Resolved]
